FAERS Safety Report 4779735-7 (Version None)
Quarter: 2005Q3

REPORT INFORMATION
  Report Type: 
  Country: None (occurrence: None)
  Receive Date: 20050914
  Receipt Date: 20050301
  Transmission Date: 20060218
  Serious: Yes (Hospitalization)
  Sender: FDA-Public Use
  Company Number: 163-20785-04100822

PATIENT
  Age: 67 Year
  Sex: Male
  Weight: 124 kg

DRUGS (10)
  1. THALOMID [Suspect]
     Indication: PROSTATE CANCER
     Dosage: 200 MG, DAILY, ORAL
     Route: 048
     Dates: start: 20020508, end: 20050215
  2. LEUPROLIDE (LEUPORELINE ACETATE) [Suspect]
     Indication: PROSTATE CANCER
     Dosage: 7.5 MG Q28 DAYS X 6 CYCLES OR 22.5MG Q84 DAYS X 2 CYCLES, INTRAMUSCULAR
     Route: 030
     Dates: start: 20020508
  3. HUMULIN INSULIN (NOVOLIN 20/80) [Concomitant]
  4. NORVASC [Concomitant]
  5. PLAVIX (CLOPRIDOGREL SULFATE) [Concomitant]
  6. PREVACID [Concomitant]
  7. PRINIVIL [Concomitant]
  8. ZOCOR [Concomitant]
  9. FUROSEMIDE [Concomitant]
  10. REGULAR INSULIN [Concomitant]

REACTIONS (4)
  - OSTEOMYELITIS [None]
  - OSTEONECROSIS [None]
  - PERIPHERAL ISCHAEMIA [None]
  - PERIPHERAL OCCLUSIVE DISEASE [None]
